FAERS Safety Report 5702633-9 (Version None)
Quarter: 2008Q2

REPORT INFORMATION
  Report Type: 
  Country: None (occurrence: None)
  Receive Date: 20080410
  Receipt Date: 20080410
  Transmission Date: 20081010
  Serious: No
  Sender: FDA-Public Use
  Company Number: None

PATIENT
  Sex: Female
  Weight: 44.7 kg

DRUGS (1)
  1. INSULIN LISPRO 100 UNITS/ML [Suspect]
     Indication: TYPE 1 DIABETES MELLITUS
     Dosage: SQ
     Route: 058

REACTIONS (5)
  - GRANULOMA [None]
  - INJECTION SITE ERYTHEMA [None]
  - INJECTION SITE INFLAMMATION [None]
  - INJECTION SITE NODULE [None]
  - SUBCUTANEOUS NODULE [None]
